FAERS Safety Report 10396419 (Version 1)
Quarter: 2014Q3

REPORT INFORMATION
  Report Type: Spontaneous
  Country: US (occurrence: US)
  Receive Date: 20140820
  Receipt Date: 20140820
  Transmission Date: 20150326
  Serious: Yes (Other)
  Sender: FDA-Public Use
  Company Number: US-PFIZER INC-2014229341

PATIENT
  Age: 1 Year
  Sex: Female
  Weight: 14.5 kg

DRUGS (6)
  1. ALBUTEROL. [Concomitant]
     Active Substance: ALBUTEROL
     Dosage: UNK
  2. ZOSYN [Suspect]
     Active Substance: PIPERACILLIN SODIUM\TAZOBACTAM SODIUM
     Indication: PNEUMONIA
     Dosage: UNK
     Route: 042
     Dates: start: 20140730, end: 20140801
  3. CLOBAZAM [Concomitant]
     Active Substance: CLOBAZAM
     Dosage: UNK
  4. VALPROIC ACID. [Interacting]
     Active Substance: VALPROIC ACID
     Indication: CONVULSION
     Dosage: UNK
  5. LORAZEPAM. [Concomitant]
     Active Substance: LORAZEPAM
     Dosage: UNK
  6. LANSOPRAZOLE. [Concomitant]
     Active Substance: LANSOPRAZOLE
     Dosage: UNK

REACTIONS (3)
  - Drug level decreased [Recovered/Resolved]
  - Drug interaction [Recovered/Resolved]
  - Convulsion [Recovered/Resolved]

NARRATIVE: CASE EVENT DATE: 2014
